FAERS Safety Report 8965394 (Version 2)
Quarter: 2013Q1

REPORT INFORMATION
  Report Type: Spontaneous
  Country: DE (occurrence: DE)
  Receive Date: 20121213
  Receipt Date: 20130107
  Transmission Date: 20140127
  Serious: No
  Sender: FDA-Public Use
  Company Number: DE-UCBSA-072843

PATIENT
  Age: 75 Year
  Sex: Female
  Weight: 62 kg

DRUGS (7)
  1. KEPPRA [Suspect]
     Indication: EPILEPSY
     Route: 048
     Dates: start: 20121105, end: 2012
  2. ALLOPURINOL [Concomitant]
  3. CANDESARTAN [Concomitant]
     Dosage: 16/12.5 MG
  4. L-THYROXIN [Concomitant]
  5. PANTOZOL [Concomitant]
  6. PIRETANID [Concomitant]
  7. PASPERTIN [Concomitant]
     Dosage: 20 GUTTAE

REACTIONS (2)
  - Gamma-glutamyltransferase increased [Recovering/Resolving]
  - Blood alkaline phosphatase increased [Recovering/Resolving]
